FAERS Safety Report 7028983-4 (Version None)
Quarter: 2010Q4

REPORT INFORMATION
  Report Type: 
  Country: None (occurrence: None)
  Receive Date: 20101005
  Receipt Date: 20101001
  Transmission Date: 20110411
  Serious: Yes (Hospitalization)
  Sender: FDA-Public Use
  Company Number: A0836076A

PATIENT
  Age: 79 Year
  Sex: Female
  Weight: 91.8 kg

DRUGS (12)
  1. AVANDIA [Suspect]
     Indication: DIABETES MELLITUS
     Dosage: 4MG PER DAY
     Route: 048
     Dates: start: 20060322, end: 20080608
  2. ZOCOR [Concomitant]
  3. ACCUPRIL [Concomitant]
  4. ATENOLOL [Concomitant]
  5. PROTONIX [Concomitant]
  6. SINEMET [Concomitant]
  7. HYDROCHLOROTHIAZIDE [Concomitant]
  8. AMBIEN [Concomitant]
  9. COUMADIN [Concomitant]
  10. ASPIRIN [Concomitant]
  11. TENORMIN [Concomitant]
  12. CARBIDOPA AND LEVODOPA [Concomitant]

REACTIONS (5)
  - CAROTID ARTERY STENOSIS [None]
  - CEREBROVASCULAR ACCIDENT [None]
  - HYPERLIPIDAEMIA [None]
  - RHABDOMYOLYSIS [None]
  - WRIST FRACTURE [None]
